FAERS Safety Report 5781332-1 (Version None)
Quarter: 2008Q2

REPORT INFORMATION
  Report Type: 
  Country: None (occurrence: None)
  Receive Date: 20080619
  Receipt Date: 20080605
  Transmission Date: 20081010
  Serious: Yes (Hospitalization)
  Sender: FDA-Public Use
  Company Number: A-US2008-20574

PATIENT
  Age: 44 Year
  Sex: Female

DRUGS (5)
  1. VENTAVIS [Suspect]
     Indication: PULMONARY ARTERIAL HYPERTENSION
     Dosage: RESPIRATORY
     Route: 055
     Dates: start: 20080507
  2. CAFFEINE CITRATE [Suspect]
  3. PSEUDOEPHEDRINE HCL [Suspect]
  4. TRACLEER [Concomitant]
  5. REVATIO (SILDENAFIL CITRATE) [Concomitant]

REACTIONS (15)
  - ASTHENIA [None]
  - COUGH [None]
  - DRUG INTERACTION [None]
  - DYSURIA [None]
  - FEELING ABNORMAL [None]
  - FLUID RETENTION [None]
  - FLUSHING [None]
  - NERVOUSNESS [None]
  - OEDEMA [None]
  - PALLOR [None]
  - PALPITATIONS [None]
  - PRESYNCOPE [None]
  - STOMACH DISCOMFORT [None]
  - SUPRAVENTRICULAR TACHYCARDIA [None]
  - TREMOR [None]
